FAERS Safety Report 8808183 (Version 1)
Quarter: 2012Q4

REPORT INFORMATION
  Report Type: 
  Country: PH (occurrence: PH)
  Receive Date: 20120925
  Receipt Date: 20120925
  Transmission Date: 20130627
  Serious: Yes (Other)
  Sender: FDA-Public Use
  Company Number: PHHY2005PH007326

PATIENT
  Age: 75 Year
  Sex: Female

DRUGS (2)
  1. GLIVEC [Suspect]
     Dates: start: 20041115, end: 20050328
  2. GLIVEC [Suspect]
     Dosage: 600 mg, Daily

REACTIONS (6)
  - Aortic valve incompetence [Unknown]
  - Cardiomegaly [Unknown]
  - Pericardial effusion [Unknown]
  - Abdominal discomfort [Unknown]
  - Dyspnoea [Unknown]
  - Malaise [Unknown]
